FAERS Safety Report 7042783-0 (Version None)
Quarter: 2010Q4

REPORT INFORMATION
  Report Type: 
  Country: None (occurrence: None)
  Receive Date: 20101013
  Receipt Date: 20100608
  Transmission Date: 20110411
  Serious: No
  Sender: FDA-Public Use
  Company Number: US-ASTRAZENECA-2010SE26596

PATIENT
  Age: 26536 Day
  Sex: Female
  Weight: 50.3 kg

DRUGS (1)
  1. SYMBICORT [Suspect]
     Dosage: 160/4.5, 2 PUFFS TWO TIMES A DAY
     Route: 055

REACTIONS (3)
  - DEHYDRATION [None]
  - DRUG EFFECT DECREASED [None]
  - URINE OUTPUT DECREASED [None]
